FAERS Safety Report 5653601-7 (Version None)
Quarter: 2008Q1

REPORT INFORMATION
  Report Type: 
  Country: None (occurrence: None)
  Receive Date: 20080131
  Receipt Date: 20071204
  Transmission Date: 20080703
  Serious: No
  Sender: FDA-Public Use
  Company Number: US200711002491

PATIENT
  Age: 68 Year
  Sex: Male
  Weight: 97.5 kg

DRUGS (9)
  1. BYETTA [Suspect]
     Indication: TYPE 2 DIABETES MELLITUS
     Dosage: 5 UG, 2/D, SUBCUTANEOUS ; 10 UG, 2/D, SUBCUTANEOUS
     Route: 058
     Dates: start: 20070720, end: 20070821
  2. BYETTA [Suspect]
     Indication: TYPE 2 DIABETES MELLITUS
     Dosage: 5 UG, 2/D, SUBCUTANEOUS ; 10 UG, 2/D, SUBCUTANEOUS
     Route: 058
     Dates: start: 20070821
  3. ACTOS /USA/ (PIOGLITAZONE HYDROCHLORIDE) [Concomitant]
  4. GLYBURIDE [Concomitant]
  5. INSULIN, REGULAR (INSULIN) [Concomitant]
  6. ZANTAC [Concomitant]
  7. LISINOPRIL [Concomitant]
  8. METFORMIN HCL [Concomitant]
  9. NOVOLIN N [Concomitant]

REACTIONS (9)
  - ABDOMINAL DISTENSION [None]
  - ASTHENIA [None]
  - CHEST DISCOMFORT [None]
  - DIARRHOEA [None]
  - DYSGEUSIA [None]
  - ORAL INTAKE REDUCED [None]
  - PHARYNGOLARYNGEAL PAIN [None]
  - VISUAL ACUITY REDUCED [None]
  - WEIGHT INCREASED [None]
